FAERS Safety Report 13925537 (Version 1)
Quarter: 2017Q3

REPORT INFORMATION
  Report Type: Spontaneous
  Country: US (occurrence: US)
  Receive Date: 20170831
  Receipt Date: 20170831
  Transmission Date: 20171127
  Serious: No
  Sender: FDA-Public Use
  Company Number: US-SA-2017SA109426

PATIENT
  Age: 34 Year
  Sex: Female
  Weight: 131.08 kg

DRUGS (5)
  1. ATIVAN [Concomitant]
     Active Substance: LORAZEPAM
     Route: 065
  2. EPIPEN [Concomitant]
     Active Substance: EPINEPHRINE
     Route: 065
  3. SOLIQUA 100/33 [Suspect]
     Active Substance: INSULIN GLARGINE\LIXISENATIDE
     Indication: DIABETES MELLITUS
     Dosage: DOSE:15 UNIT(S)
     Route: 051
     Dates: start: 20170613, end: 20170615
  4. FERROUS SULFATE. [Concomitant]
     Active Substance: FERROUS SULFATE
     Route: 065
  5. SOLOSTAR [Concomitant]
     Active Substance: DEVICE
     Indication: DIABETES MELLITUS

REACTIONS (2)
  - Blood glucose increased [Unknown]
  - Product use issue [Unknown]

NARRATIVE: CASE EVENT DATE: 20170613
